FAERS Safety Report 18899067 (Version 2)
Quarter: 2021Q2

REPORT INFORMATION
  Report Type: Report from Study
  Country: US (occurrence: US)
  Receive Date: 20210216
  Receipt Date: 20210601
  Transmission Date: 20210717
  Serious: Yes (Hospitalization, Other)
  Sender: FDA-Public Use
  Company Number: US-SHIRE-US202023675

PATIENT
  Age: 63 Year
  Sex: Female

DRUGS (1)
  1. HUMAN IMMUNOGLOBULIN; HYALURONIDASE [Suspect]
     Active Substance: HUMAN IMMUNOGLOBULIN G\HYALURONIDASE RECOMBINANT HUMAN
     Indication: PRIMARY IMMUNODEFICIENCY SYNDROME
     Dosage: 52.5 GRAM
     Route: 065

REACTIONS (13)
  - Aspiration [Unknown]
  - Spinal stenosis [Unknown]
  - Myelopathy [Unknown]
  - Lung disorder [Unknown]
  - Weight decreased [Unknown]
  - Ecchymosis [Not Recovered/Not Resolved]
  - Illness [Not Recovered/Not Resolved]
  - Infusion site erythema [Unknown]
  - Pneumonia [Not Recovered/Not Resolved]
  - Sepsis [Unknown]
  - Rheumatoid arthritis [Unknown]
  - Balance disorder [Not Recovered/Not Resolved]
  - Cough [Not Recovered/Not Resolved]

NARRATIVE: CASE EVENT DATE: 20200721
